FAERS Safety Report 15435929 (Version 1)
Quarter: 2018Q3

REPORT INFORMATION
  Report Type: Spontaneous
  Country: GB (occurrence: GB)
  Receive Date: 20180927
  Receipt Date: 20180927
  Transmission Date: 20181010
  Serious: Yes (Other)
  Sender: FDA-Public Use
  Company Number: GB-SA-2018SA264440

PATIENT
  Age: 62 Year
  Sex: Female
  Weight: 67.3 kg

DRUGS (10)
  1. CETRIZINE [Concomitant]
     Active Substance: CETIRIZINE HYDROCHLORIDE
     Indication: SEASONAL ALLERGY
     Dosage: 10 MG, QD, PRN
     Route: 048
  2. CALCIUM CARBONATE WITH D3 [Concomitant]
     Indication: VITAMIN SUPPLEMENTATION
     Dosage: 1 DF, BID
     Route: 048
  3. HYDROXOCOBALAMIN [Concomitant]
     Active Substance: HYDROXOCOBALAMIN
     Indication: VITAMIN SUPPLEMENTATION
     Dosage: 1 MG, Q3M
     Route: 058
  4. MELOXICAM. [Concomitant]
     Active Substance: MELOXICAM
     Indication: ANALGESIC THERAPY
     Dosage: 7.5 MG, UNK
     Route: 048
  5. FOLIC ACID. [Concomitant]
     Active Substance: FOLIC ACID
     Indication: SUPPLEMENTATION THERAPY
     Dosage: 400 MG, QD
     Route: 048
  6. LANSOPRAZOLE. [Concomitant]
     Active Substance: LANSOPRAZOLE
     Indication: PROPHYLAXIS
     Dosage: 15 MG, QD
     Route: 048
  7. NEUROFEN [Concomitant]
     Active Substance: IBUPROFEN
     Indication: ANALGESIC THERAPY
     Dosage: 1 DF, Q6H
     Route: 048
  8. CERDELGA [Suspect]
     Active Substance: ELIGLUSTAT
     Indication: GAUCHER^S DISEASE
     Dosage: 84 MG, BID
     Route: 048
     Dates: start: 20180902
  9. PARACETAMOL [Concomitant]
     Active Substance: ACETAMINOPHEN
     Indication: ANALGESIC THERAPY
     Dosage: 1 G, Q6H
     Route: 048
     Dates: start: 201803
  10. COCODAMOL [Concomitant]
     Active Substance: ACETAMINOPHEN\CODEINE PHOSPHATE
     Indication: ANALGESIC THERAPY
     Dosage: 1*8/500/MG TABLETS, BID
     Route: 048
     Dates: start: 201803

REACTIONS (3)
  - Arthralgia [Not Recovered/Not Resolved]
  - Pain [Not Recovered/Not Resolved]
  - Hip fracture [Not Recovered/Not Resolved]

NARRATIVE: CASE EVENT DATE: 20180918
